FAERS Safety Report 4310203-2 (Version None)
Quarter: 2004Q1

REPORT INFORMATION
  Report Type: 
  Country: None (occurrence: None)
  Receive Date: 20040301
  Receipt Date: 20040104
  Transmission Date: 20041129
  Serious: No
  Sender: FDA-Public Use
  Company Number: WAES 0401USA00100

PATIENT
  Age: 82 Year
  Sex: Female

DRUGS (7)
  1. ZETIA [Suspect]
     Indication: BLOOD CHOLESTEROL INCREASED
     Dosage: PO
  2. FOSAMAX [Concomitant]
  3. XALATAN [Concomitant]
  4. THERAPY UNSPECIFIED [Concomitant]
  5. CALCIUM [Concomitant]
  6. ESTROGENIC SUBSTANCE [Concomitant]
  7. MULTIVITAMIN [Concomitant]

REACTIONS (4)
  - ARTHRITIS [None]
  - BURSITIS [None]
  - MYALGIA [None]
  - TENDON DISORDER [None]
